FAERS Safety Report 6612275-9 (Version None)
Quarter: 2010Q1

REPORT INFORMATION
  Report Type: 
  Country: None (occurrence: None)
  Receive Date: 20100223
  Receipt Date: 20091109
  Transmission Date: 20100710
  Serious: Yes (Other)
  Sender: FDA-Public Use
  Company Number: DSA_41667_2009

PATIENT
  Age: 15 Year
  Sex: Female

DRUGS (1)
  1. APLENZIN [Suspect]
     Indication: MAJOR DEPRESSION
     Dosage: (522 MG QD ORAL)
     Route: 048
     Dates: start: 20090101

REACTIONS (1)
  - CONVULSION [None]
